FAERS Safety Report 23342772 (Version 1)
Quarter: 2023Q4

REPORT INFORMATION
  Report Type: Spontaneous
  Country: AR (occurrence: AR)
  Receive Date: 20231227
  Receipt Date: 20231227
  Transmission Date: 20240110
  Serious: No
  Sender: FDA-Public Use
  Company Number: AR-JNJFOC-20231219076

PATIENT
  Age: 62 Year
  Sex: Female
  Weight: 54 kg

DRUGS (1)
  1. SIMPONI [Suspect]
     Active Substance: GOLIMUMAB
     Indication: Rheumatoid arthritis
     Dosage: STRENGTH: 50.00 MG / 0.50 ML
     Route: 058

REACTIONS (5)
  - Injection site bruising [Unknown]
  - Injection site pain [Unknown]
  - Needle issue [Unknown]
  - Product leakage [Unknown]
  - Underdose [Unknown]

NARRATIVE: CASE EVENT DATE: 20231128
